FAERS Safety Report 8555400-5 (Version None)
Quarter: 2012Q3

REPORT INFORMATION
  Report Type: 
  Country: None (occurrence: None)
  Receive Date: 20120731
  Receipt Date: 20111006
  Transmission Date: 20120928
  Serious: No
  Sender: FDA-Public Use
  Company Number: US-ASTRAZENECA-2011SE44162

PATIENT
  Age: 44 Year
  Sex: Male
  Weight: 99.8 kg

DRUGS (7)
  1. SEROQUEL [Suspect]
     Indication: DEPRESSION
     Route: 048
     Dates: start: 20060101
  2. LEXAPRO [Concomitant]
  3. SEROQUEL [Suspect]
     Route: 048
     Dates: start: 20110503, end: 20110801
  4. PURPLE PILL FOR STOMACH [Concomitant]
     Indication: GASTRIC DISORDER
  5. ASPIRIN [Concomitant]
  6. SEROQUEL [Suspect]
     Route: 048
     Dates: start: 20110503, end: 20110801
  7. SEROQUEL [Suspect]
     Indication: INSOMNIA
     Route: 048
     Dates: start: 20060101

REACTIONS (5)
  - VERTIGO [None]
  - SEDATION [None]
  - MEMORY IMPAIRMENT [None]
  - OFF LABEL USE [None]
  - ASTHMA [None]
